FAERS Safety Report 9815005 (Version 1)
Quarter: 2014Q1

REPORT INFORMATION
  Report Type: Report from Study
  Country: US (occurrence: US)
  Receive Date: 20140114
  Receipt Date: 20140114
  Transmission Date: 20141002
  Serious: Yes (Hospitalization)
  Sender: FDA-Public Use
  Company Number: US-ROCHE-1332341

PATIENT
  Age: 73 Year
  Sex: Female

DRUGS (5)
  1. LUCENTIS [Suspect]
     Indication: RETINAL HAEMORRHAGE
     Route: 050
     Dates: start: 2012
  2. METFORMIN HYDROCHLORIDE [Concomitant]
     Indication: DIABETES MELLITUS
     Route: 065
  3. CLONIDINE [Concomitant]
     Indication: HYPERTENSION
  4. ADVAIR [Concomitant]
     Indication: ASTHMA
  5. SINGULAIR [Concomitant]
     Indication: ASTHMA

REACTIONS (1)
  - Pneumonia [Recovered/Resolved]
